FAERS Safety Report 7497280-5 (Version None)
Quarter: 2011Q2

REPORT INFORMATION
  Report Type: 
  Country: None (occurrence: None)
  Receive Date: 20110523
  Receipt Date: 20110510
  Transmission Date: 20111010
  Serious: Yes (Other)
  Sender: FDA-Public Use
  Company Number: PHHY2011MX41640

PATIENT
  Age: 76 Year
  Sex: Female

DRUGS (1)
  1. DIOVAN [Suspect]
     Indication: HYPERTENSION
     Dosage: 1 TABLET (UNK MG) PER DAY
     Dates: start: 20080501, end: 20110201

REACTIONS (2)
  - BLOOD PRESSURE INCREASED [None]
  - BRAIN NEOPLASM BENIGN [None]
